FAERS Safety Report 6945028-2 (Version None)
Quarter: 2010Q3

REPORT INFORMATION
  Report Type: 
  Country: None (occurrence: None)
  Receive Date: 20100827
  Receipt Date: 20100816
  Transmission Date: 20110219
  Serious: Yes (Other)
  Sender: FDA-Public Use
  Company Number: PHHY2010US54218

PATIENT
  Sex: Female

DRUGS (6)
  1. FEMARA [Suspect]
     Indication: ADJUVANT THERAPY
     Dosage: 2.5 MG, QD
     Route: 048
     Dates: start: 20090601, end: 20100811
  2. CHOLESTEROL MEDICATION [Concomitant]
  3. ANTIHYPERTENSIVES [Concomitant]
  4. AVAPRO [Concomitant]
  5. GLYBURIDE [Concomitant]
  6. METFORMIN [Concomitant]

REACTIONS (4)
  - BLINDNESS UNILATERAL [None]
  - CATARACT [None]
  - CATARACT OPERATION [None]
  - MACULAR OEDEMA [None]
